APPROVED DRUG PRODUCT: ELTROMBOPAG OLAMINE
Active Ingredient: ELTROMBOPAG OLAMINE
Strength: EQ 25MG ACID
Dosage Form/Route: TABLET;ORAL
Application: A216281 | Product #002 | TE Code: AB
Applicant: ZYDUS PHARMACEUTICALS USA INC
Approved: Jan 14, 2026 | RLD: No | RS: No | Type: RX